FAERS Safety Report 23797711 (Version 2)
Quarter: 2024Q2

REPORT INFORMATION
  Report Type: Spontaneous
  Country: FI (occurrence: FI)
  Receive Date: 20240430
  Receipt Date: 20240625
  Transmission Date: 20240715
  Serious: Yes (Other)
  Sender: FDA-Public Use
  Company Number: FI-002147023-NVSC2024FI088978

PATIENT
  Age: 33 Year
  Sex: Female

DRUGS (4)
  1. AIMOVIG [Suspect]
     Active Substance: ERENUMAB-AOOE
     Indication: Migraine
     Dosage: 1 DOSAGE FORM, QMO (1 INJECTION)
     Route: 058
     Dates: start: 202311, end: 202402
  2. IBUPROFEN [Concomitant]
     Active Substance: IBUPROFEN
     Indication: Migraine
     Dosage: UNK (MAXIMUM DAILY DOSE)
     Route: 065
  3. PANADOL [Concomitant]
     Active Substance: ACETAMINOPHEN
     Indication: Migraine
     Dosage: UNK (MAXIMUM DAILY DOSE)
     Route: 065
  4. BUPROPION HYDROCHLORIDE [Concomitant]
     Active Substance: BUPROPION HYDROCHLORIDE
     Indication: Depression
     Dosage: 150 MG, QD
     Route: 065
     Dates: start: 202304, end: 202404

REACTIONS (15)
  - Erysipelas [Unknown]
  - Pruritus [Recovered/Resolved]
  - Rash macular [Recovered/Resolved]
  - Erythema [Unknown]
  - Swelling [Not Recovered/Not Resolved]
  - Pyrexia [Recovered/Resolved]
  - Fatigue [Not Recovered/Not Resolved]
  - Arthralgia [Not Recovered/Not Resolved]
  - Abnormal faeces [Not Recovered/Not Resolved]
  - Blepharitis [Recovered/Resolved]
  - Rash [Not Recovered/Not Resolved]
  - Rash [Recovered/Resolved]
  - Rash [Recovered/Resolved]
  - Gastrointestinal disorder [Unknown]
  - Drug ineffective [Unknown]

NARRATIVE: CASE EVENT DATE: 20230101
